FAERS Safety Report 19270881 (Version 2)
Quarter: 2021Q3

REPORT INFORMATION
  Report Type: Spontaneous
  Country: GB (occurrence: GB)
  Receive Date: 20210518
  Receipt Date: 20210705
  Transmission Date: 20211014
  Serious: Yes (Other)
  Sender: FDA-Public Use
  Company Number: GB-PFIZER INC-2021512776

PATIENT
  Age: 80 Year
  Sex: Male

DRUGS (2)
  1. AXITINIB [Suspect]
     Active Substance: AXITINIB
     Indication: CLEAR CELL RENAL CELL CARCINOMA
     Dosage: 5 MG, 2X/DAY
     Dates: start: 20200213
  2. AVELUMAB [Suspect]
     Active Substance: AVELUMAB
     Indication: CLEAR CELL RENAL CELL CARCINOMA
     Dosage: 800 MG, EVERY 2 WEEKS
     Route: 042
     Dates: start: 20200213

REACTIONS (3)
  - Dyspnoea [Recovered/Resolved]
  - Eastern Cooperative Oncology Group performance status worsened [Unknown]
  - Pleural effusion [Recovered/Resolved]

NARRATIVE: CASE EVENT DATE: 20200221
